FAERS Safety Report 9297234 (Version 1)
Quarter: 2013Q2

REPORT INFORMATION
  Report Type: Spontaneous
  Country: US (occurrence: US)
  Receive Date: 20130520
  Receipt Date: 20130520
  Transmission Date: 20140414
  Serious: No
  Sender: FDA-Public Use
  Company Number: US-BIOGENIDEC-2013BI041759

PATIENT
  Age: 39 Year
  Sex: Female

DRUGS (2)
  1. TYSABRI [Suspect]
     Indication: MULTIPLE SCLEROSIS
     Route: 042
     Dates: start: 20130412
  2. AVONEX [Concomitant]
     Indication: MULTIPLE SCLEROSIS
     Route: 030
     Dates: start: 20111111

REACTIONS (5)
  - Feeling hot [Recovered/Resolved]
  - Pallor [Recovered/Resolved]
  - General symptom [Recovered/Resolved]
  - Influenza like illness [Recovered/Resolved]
  - Dizziness [Recovered/Resolved]
